FAERS Safety Report 19457830 (Version 3)
Quarter: 2021Q4

REPORT INFORMATION
  Report Type: Spontaneous
  Country: US (occurrence: US)
  Receive Date: 20210624
  Receipt Date: 20211122
  Transmission Date: 20220303
  Serious: No
  Sender: FDA-Public Use
  Company Number: US-PFIZER INC-2021603369

PATIENT
  Age: 11 Month
  Sex: Female
  Weight: 4.99 kg

DRUGS (6)
  1. GENOTROPIN [Suspect]
     Active Substance: SOMATROPIN
     Indication: Septo-optic dysplasia
     Dosage: 0.5 MG
     Dates: start: 2020
  2. GENOTROPIN [Suspect]
     Active Substance: SOMATROPIN
     Indication: Growth hormone deficiency
     Dosage: 5MG, 0.2ML, ADMINISTERED ROTATING RIGHT AND LEFT THIGH AND RIGHT AND LEFT BUTT CHEEK
     Dates: start: 20210201
  3. GENOTROPIN [Suspect]
     Active Substance: SOMATROPIN
     Indication: Blindness unilateral
  4. GENOTROPIN [Suspect]
     Active Substance: SOMATROPIN
     Indication: Optic nerve injury
  5. LACTULOSE [Concomitant]
     Active Substance: LACTULOSE
     Indication: Defaecation disorder
     Dosage: UNK
  6. DIURIL [CHLOROTHIAZIDE SODIUM] [Concomitant]
     Indication: Diabetes insipidus
     Dosage: UNK

REACTIONS (4)
  - Device malfunction [Unknown]
  - Device leakage [Unknown]
  - Drug dose omission by device [Unknown]
  - Poor quality device used [Unknown]

NARRATIVE: CASE EVENT DATE: 20210520
